FAERS Safety Report 17051692 (Version 1)
Quarter: 2019Q4

REPORT INFORMATION
  Report Type: Spontaneous
  Country: CA (occurrence: CA)
  Receive Date: 20191120
  Receipt Date: 20191120
  Transmission Date: 20200122
  Serious: Yes (Hospitalization, Other)
  Sender: FDA-Public Use
  Company Number: CA-AUROBINDO-AUR-APL-2019-073480

PATIENT
  Age: 30 Year
  Sex: Male

DRUGS (10)
  1. SERTRALINE [Suspect]
     Active Substance: SERTRALINE HYDROCHLORIDE
     Indication: ASTHMA
     Dosage: UNK
     Route: 065
  2. PREDNISONE. [Concomitant]
     Active Substance: PREDNISONE
     Indication: ASTHMA
     Dosage: 40 MILLIGRAM
     Route: 065
  3. MEPOLIZUMAB [Suspect]
     Active Substance: MEPOLIZUMAB
     Indication: ASTHMA
     Dosage: 100 MILLIGRAM
     Route: 042
  4. VENTOLIN [Suspect]
     Active Substance: ALBUTEROL SULFATE
     Indication: ASTHMA
     Dosage: UNK, ONCE A DAY
     Route: 048
  5. VENTOLIN [Suspect]
     Active Substance: ALBUTEROL SULFATE
     Indication: ASTHMA
     Dosage: UNK
     Route: 065
  6. PREDNISONE. [Concomitant]
     Active Substance: PREDNISONE
     Dosage: 50 MILLIGRAM, ONCE A DAY
     Route: 065
  7. BUDESONIDE;FORMOTEROL [Suspect]
     Active Substance: BUDESONIDE\FORMOTEROL
     Indication: ASTHMA
     Dosage: 2 DOSAGE FORM, TWO TIMES A DAY
  8. ADVAIR HFA [Concomitant]
     Active Substance: FLUTICASONE PROPIONATE\SALMETEROL XINAFOATE
     Indication: ASTHMA
     Dosage: UNK
     Route: 065
  9. PREDNISONE. [Concomitant]
     Active Substance: PREDNISONE
     Indication: ASTHMA
     Dosage: UNK
     Route: 048
  10. ZOPICLONE [Concomitant]
     Active Substance: ZOPICLONE
     Indication: ASTHMA
     Dosage: UNK
     Route: 065

REACTIONS (102)
  - Adrenal insufficiency [Recovering/Resolving]
  - Bronchial wall thickening [Recovering/Resolving]
  - Bronchopulmonary dysplasia [Recovering/Resolving]
  - Burning sensation [Recovering/Resolving]
  - Decreased appetite [Recovering/Resolving]
  - Dermatitis [Recovering/Resolving]
  - Hepatosplenomegaly [Recovering/Resolving]
  - Hypertension [Recovering/Resolving]
  - Hypoventilation [Recovering/Resolving]
  - Hypoxia [Recovering/Resolving]
  - Intervertebral disc degeneration [Recovering/Resolving]
  - Motor dysfunction [Recovering/Resolving]
  - Therapeutic product effect incomplete [Recovering/Resolving]
  - Upper-airway cough syndrome [Recovering/Resolving]
  - Viral disease carrier [Recovering/Resolving]
  - Anxiety [Recovering/Resolving]
  - Blood test abnormal [Recovering/Resolving]
  - Bronchitis [Recovering/Resolving]
  - Bundle branch block right [Recovering/Resolving]
  - Cough [Recovering/Resolving]
  - Ear disorder [Recovering/Resolving]
  - Influenza [Recovering/Resolving]
  - Ligament injury [Recovering/Resolving]
  - Nasal congestion [Recovering/Resolving]
  - Peripheral swelling [Recovering/Resolving]
  - Pulmonary function test abnormal [Recovering/Resolving]
  - Sleep disorder [Recovering/Resolving]
  - Abdominal discomfort [Recovering/Resolving]
  - Abdominal tenderness [Recovering/Resolving]
  - Addison^s disease [Recovering/Resolving]
  - Anger [Recovering/Resolving]
  - Dermal cyst [Recovering/Resolving]
  - Diarrhoea [Recovering/Resolving]
  - Dyspnoea exertional [Recovering/Resolving]
  - Joint effusion [Recovering/Resolving]
  - Mass [Recovering/Resolving]
  - Obstructive airways disorder [Recovering/Resolving]
  - Sinus tachycardia [Recovering/Resolving]
  - Vomiting [Recovering/Resolving]
  - Depressed mood [Recovering/Resolving]
  - Depression [Recovering/Resolving]
  - Fatigue [Recovering/Resolving]
  - Myelopathy [Recovering/Resolving]
  - Oxygen saturation decreased [Recovering/Resolving]
  - Pharyngeal erythema [Recovering/Resolving]
  - Somnolence [Recovering/Resolving]
  - Tracheal disorder [Recovering/Resolving]
  - Wheezing [Recovering/Resolving]
  - Chest discomfort [Recovering/Resolving]
  - Dry skin [Recovering/Resolving]
  - Headache [Recovering/Resolving]
  - Hypoaesthesia [Recovering/Resolving]
  - Malaise [Recovering/Resolving]
  - Nasal mucosal discolouration [Recovering/Resolving]
  - Nasopharyngitis [Recovering/Resolving]
  - Pain [Recovering/Resolving]
  - Paraesthesia [Recovering/Resolving]
  - Pericarditis [Recovering/Resolving]
  - Productive cough [Recovering/Resolving]
  - Pyrexia [Recovering/Resolving]
  - Restrictive pulmonary disease [Recovering/Resolving]
  - Strabismus [Recovering/Resolving]
  - Abdominal distension [Recovering/Resolving]
  - Arthralgia [Recovering/Resolving]
  - Asthenia [Recovering/Resolving]
  - Cardiac disorder [Recovering/Resolving]
  - Communication disorder [Recovering/Resolving]
  - Groin pain [Recovering/Resolving]
  - Haemoglobin increased [Recovering/Resolving]
  - Kyphosis [Recovering/Resolving]
  - Lung hyperinflation [Recovering/Resolving]
  - Meniscus injury [Recovering/Resolving]
  - Musculoskeletal pain [Recovering/Resolving]
  - Scar [Recovering/Resolving]
  - Skin mass [Recovering/Resolving]
  - Tachypnoea [Recovering/Resolving]
  - Asthma [Recovering/Resolving]
  - Blood immunoglobulin E decreased [Recovering/Resolving]
  - Blood immunoglobulin E increased [Recovering/Resolving]
  - Carpal tunnel syndrome [Recovering/Resolving]
  - Deafness [Recovering/Resolving]
  - Dyspnoea [Recovering/Resolving]
  - Excessive masturbation [Recovering/Resolving]
  - Haemorrhage [Recovering/Resolving]
  - Impaired work ability [Recovering/Resolving]
  - Infection [Recovering/Resolving]
  - Palpitations [Recovering/Resolving]
  - Right atrial enlargement [Recovering/Resolving]
  - Arthritis infective [Recovering/Resolving]
  - Bacterial infection [Recovering/Resolving]
  - Cognitive disorder [Recovering/Resolving]
  - Electrocardiogram QRS complex prolonged [Recovering/Resolving]
  - Intervertebral disc protrusion [Recovering/Resolving]
  - Pain of skin [Recovering/Resolving]
  - Pneumonia [Recovering/Resolving]
  - Pruritus [Recovering/Resolving]
  - Respiration abnormal [Recovering/Resolving]
  - Retching [Recovering/Resolving]
  - Suicidal ideation [Recovering/Resolving]
  - Syncope [Recovering/Resolving]
  - Tremor [Recovering/Resolving]
  - Weight decreased [Recovering/Resolving]
